FAERS Safety Report 20439735 (Version 1)
Quarter: 2022Q1

REPORT INFORMATION
  Report Type: Spontaneous
  Country: US (occurrence: None)
  Receive Date: 20220204
  Receipt Date: 20220204
  Transmission Date: 20220424
  Serious: No
  Sender: FDA-Public Use
  Company Number: None

PATIENT
  Age: 39 Year
  Sex: Female
  Weight: 121.5 kg

DRUGS (11)
  1. QULIPTA [Suspect]
     Active Substance: ATOGEPANT
     Indication: Migraine
     Dosage: OTHER QUANTITY : 30 TABLET(S);?FREQUENCY : DAILY;?
     Route: 048
     Dates: start: 20220122, end: 20220131
  2. NATURE-THROID [Concomitant]
     Active Substance: THYROID, PORCINE
  3. TIZANIDINE [Suspect]
     Active Substance: TIZANIDINE
  4. ONDANSETRON [Concomitant]
     Active Substance: ONDANSETRON
  5. UBRELVY [Concomitant]
     Active Substance: UBROGEPANT
  6. PROGESTERONE [Concomitant]
     Active Substance: PROGESTERONE
  7. MAGNESIUM [Concomitant]
     Active Substance: MAGNESIUM
  8. VITAMIN C [Concomitant]
     Active Substance: ASCORBIC ACID
  9. VITAMIN D [Concomitant]
     Active Substance: VITAMIN D NOS
  10. VITAMIN B COMPLEX [Concomitant]
     Active Substance: CYANOCOBALAMIN\DEXPANTHENOL\NIACINAMIDE\PYRIDOXINE HYDROCHLORIDE\RIBOFLAVIN 5^-PHOSPHATE SODIUM\THIA
  11. MENAQUINONE 6 [Concomitant]
     Active Substance: MENAQUINONE 6

REACTIONS (4)
  - Migraine [None]
  - Vision blurred [None]
  - Drug ineffective [None]
  - Paradoxical drug reaction [None]

NARRATIVE: CASE EVENT DATE: 20220123
